FAERS Safety Report 22259785 (Version 2)
Quarter: 2023Q2

REPORT INFORMATION
  Report Type: Other
  Country: GB (occurrence: GB)
  Receive Date: 20230427
  Receipt Date: 20230504
  Transmission Date: 20230722
  Serious: Yes (Death, Hospitalization)
  Sender: FDA-Public Use
  Company Number: GB-ALVOGEN-2023091362

PATIENT
  Age: 74 Year
  Sex: Female

DRUGS (3)
  1. METHOTREXATE [Suspect]
     Active Substance: METHOTREXATE
     Indication: Rheumatoid arthritis
  2. PREDNISOLONE [Concomitant]
     Active Substance: PREDNISOLONE
     Indication: Product used for unknown indication
     Dosage: DAILY.
  3. SULFASALAZINE [Concomitant]
     Active Substance: SULFASALAZINE
     Indication: Product used for unknown indication

REACTIONS (15)
  - Toxicity to various agents [Fatal]
  - Cachexia [Fatal]
  - Oedema [Fatal]
  - Dyspnoea [Fatal]
  - Jaundice [Fatal]
  - Hyperferritinaemia [Fatal]
  - Hypoalbuminaemia [Fatal]
  - Folate deficiency [Fatal]
  - Splenomegaly [Fatal]
  - Haemophagocytic lymphohistiocytosis [Fatal]
  - Primary hypothyroidism [Fatal]
  - Pleural effusion [Fatal]
  - Ascites [Fatal]
  - Hyperbilirubinaemia [Fatal]
  - Pancytopenia [Fatal]
